FAERS Safety Report 6247482-0 (Version None)
Quarter: 2009Q2

REPORT INFORMATION
  Report Type: 
  Country: None (occurrence: None)
  Receive Date: 20090626
  Receipt Date: 20090619
  Transmission Date: 20091009
  Serious: Yes (Other)
  Sender: FDA-Public Use
  Company Number: JP-ASTRAZENECA-2009SE02492

PATIENT
  Age: 30 Year
  Sex: Female

DRUGS (8)
  1. XYLOCAINE [Suspect]
     Dosage: DOSE UNKNOWN
     Route: 037
  2. MARCAINE [Suspect]
     Dosage: DOSE UNKNOWN
     Route: 065
  3. FLUMARIN [Concomitant]
     Dosage: DOSE UNKNOWN
     Route: 041
  4. ATROPINE SULFATE [Concomitant]
     Dosage: DOSE UNKNOWN
     Route: 048
  5. MORPHINE AND ATROPINE [Concomitant]
     Dosage: DOSE UNKNOWN
     Route: 065
  6. METENARIN [Concomitant]
     Dosage: DOSE UNKNOWN
     Route: 058
  7. PROSTARMON E [Concomitant]
     Dosage: DOSE UNKNOWN
     Route: 065
  8. ATONIN-O [Concomitant]
     Dosage: DOSE UNKNOWN
     Route: 041

REACTIONS (1)
  - ANAPHYLACTIC SHOCK [None]
